FAERS Safety Report 8158571-8 (Version None)
Quarter: 2012Q1

REPORT INFORMATION
  Report Type: 
  Country: None (occurrence: None)
  Receive Date: 20120223
  Receipt Date: 20120215
  Transmission Date: 20120608
  Serious: Yes (Other)
  Sender: FDA-Public Use
  Company Number: FR-JNJFOC-20120208854

PATIENT
  Sex: Female

DRUGS (2)
  1. DOXORUBICIN HCL [Suspect]
     Indication: OVARIAN CANCER RECURRENT
     Route: 042
  2. CARBOPLATIN [Suspect]
     Indication: OVARIAN CANCER RECURRENT
     Route: 065

REACTIONS (10)
  - FEBRILE NEUTROPENIA [None]
  - THROMBOCYTOPENIA [None]
  - PERIPHERAL SENSORY NEUROPATHY [None]
  - ARTHRALGIA [None]
  - ANAEMIA [None]
  - ALOPECIA [None]
  - PALMAR-PLANTAR ERYTHRODYSAESTHESIA SYNDROME [None]
  - MYALGIA [None]
  - NEUTROPENIA [None]
  - HYPERSENSITIVITY [None]
